FAERS Safety Report 7527279-1 (Version None)
Quarter: 2011Q2

REPORT INFORMATION
  Report Type: 
  Country: None (occurrence: None)
  Receive Date: 20110603
  Receipt Date: 20110603
  Transmission Date: 20111010
  Serious: No
  Sender: FDA-Public Use
  Company Number: None

PATIENT
  Sex: Female
  Weight: 73.4827 kg

DRUGS (1)
  1. LISINOPRIL [Suspect]
     Indication: HYPERTENSION
     Dosage: 25 MG DAILY ORAL
     Route: 048
     Dates: start: 20100206, end: 20110411

REACTIONS (3)
  - COUGH [None]
  - CHOKING [None]
  - DYSPHONIA [None]
